FAERS Safety Report 24679250 (Version 1)
Quarter: 2024Q4

REPORT INFORMATION
  Report Type: Spontaneous
  Country: JP (occurrence: JP)
  Receive Date: 20241129
  Receipt Date: 20241129
  Transmission Date: 20250115
  Serious: Yes (Other)
  Sender: NOVARTIS
  Company Number: JP-002147023-NVSJ2024JP013822

PATIENT

DRUGS (4)
  1. TAFINLAR [Suspect]
     Active Substance: DABRAFENIB MESYLATE
     Indication: Anaplastic thyroid cancer
     Dosage: 150 MG, BID
     Route: 048
     Dates: start: 202405
  2. TAFINLAR [Suspect]
     Active Substance: DABRAFENIB MESYLATE
     Dosage: UNK
     Route: 048
  3. MEKINIST [Suspect]
     Active Substance: TRAMETINIB DIMETHYL SULFOXIDE
     Indication: Anaplastic thyroid cancer
     Dosage: 2 MG, QD
     Route: 048
     Dates: start: 202405
  4. MEKINIST [Suspect]
     Active Substance: TRAMETINIB DIMETHYL SULFOXIDE
     Dosage: UNK
     Route: 048

REACTIONS (3)
  - Interstitial lung disease [Recovered/Resolved]
  - Metastases to lymph nodes [Unknown]
  - Therapeutic product effect incomplete [Unknown]
